FAERS Safety Report 5600554-3 (Version None)
Quarter: 2008Q1

REPORT INFORMATION
  Report Type: 
  Country: None (occurrence: None)
  Receive Date: 20080123
  Receipt Date: 20080103
  Transmission Date: 20080703
  Serious: No
  Sender: FDA-Public Use
  Company Number: US-BOEHRINGER INGELHEIM PHARMACEUTICALS, INC.-2007-BP-24924BP

PATIENT
  Sex: Male

DRUGS (3)
  1. CATAPRES-TTS-1 [Suspect]
     Indication: HYPERTENSION
     Route: 061
     Dates: start: 20060101
  2. CARDIZEM [Concomitant]
  3. LISINOPRIL [Concomitant]

REACTIONS (1)
  - BLOOD PRESSURE INCREASED [None]
